FAERS Safety Report 5507486-X (Version None)
Quarter: 2007Q4

REPORT INFORMATION
  Report Type: 
  Country: None (occurrence: None)
  Receive Date: 20071102
  Receipt Date: 20071022
  Transmission Date: 20080405
  Serious: Yes (Life-Threatening, Hospitalization)
  Sender: FDA-Public Use
  Company Number: 2007AL004524

PATIENT
  Age: 56 Year
  Sex: Female

DRUGS (12)
  1. NAPROXEN [Suspect]
     Indication: ARTHRALGIA
     Dosage: PO
     Route: 048
  2. IBUPROFEN [Concomitant]
  3. PIROXICAM [Concomitant]
  4. COZAAR [Concomitant]
  5. FUROSEMIDE [Concomitant]
  6. VOLTAREN [Concomitant]
  7. NONI JUICE [Concomitant]
  8. FENAZON-KOFFEIN [Concomitant]
  9. DOXYCYCLINE [Concomitant]
  10. DIAZEPAM [Concomitant]
  11. PINEX FORTE [Concomitant]
  12. PINEX /NOR/ [Concomitant]

REACTIONS (4)
  - CHRONIC OBSTRUCTIVE PULMONARY DISEASE [None]
  - DYSPNOEA [None]
  - GENERALISED OEDEMA [None]
  - HYPONATRAEMIA [None]
